FAERS Safety Report 7378809-4 (Version None)
Quarter: 2011Q1

REPORT INFORMATION
  Report Type: 
  Country: None (occurrence: None)
  Receive Date: 20110328
  Receipt Date: 20110314
  Transmission Date: 20110831
  Serious: Yes (Other)
  Sender: FDA-Public Use
  Company Number: PHHY2011DE21070

PATIENT
  Sex: Male

DRUGS (2)
  1. TAXOTERE [Concomitant]
  2. ZOMETA [Suspect]
     Indication: PROSTATE CANCER
     Dosage: 04 MG EVERY 04 WEEKS
     Route: 042

REACTIONS (2)
  - TOOTHACHE [None]
  - TOOTH ABSCESS [None]
